FAERS Safety Report 14435874 (Version 1)
Quarter: 2018Q1

REPORT INFORMATION
  Report Type: Spontaneous
  Country: US (occurrence: US)
  Receive Date: 20180124
  Receipt Date: 20180124
  Transmission Date: 20180509
  Serious: No
  Sender: FDA-Public Use
  Company Number: None

PATIENT
  Age: 48 Year
  Sex: Female

DRUGS (1)
  1. ESTRADIOL. [Suspect]
     Active Substance: ESTRADIOL
     Dosage: ?          OTHER FREQUENCY:PATCH/WEEK;?
     Route: 062
     Dates: start: 20171213, end: 20180123

REACTIONS (1)
  - Application site rash [None]

NARRATIVE: CASE EVENT DATE: 20180123
